FAERS Safety Report 8418287-7 (Version None)
Quarter: 2012Q2

REPORT INFORMATION
  Report Type: 
  Country: None (occurrence: None)
  Receive Date: 20120607
  Receipt Date: 20120530
  Transmission Date: 20120825
  Serious: Yes (Hospitalization)
  Sender: FDA-Public Use
  Company Number: US-BAYER-2012-014799

PATIENT
  Age: 36 Year
  Sex: Female
  Weight: 52.154 kg

DRUGS (5)
  1. FLONASE [Concomitant]
     Indication: RHINITIS ALLERGIC
     Dosage: UNK
     Dates: start: 20100101
  2. YAZ [Suspect]
     Indication: ACNE
  3. CLOBETASOL PROPIONATE [Concomitant]
     Indication: ECZEMA
     Dosage: UNK
     Dates: start: 20050101
  4. MULTI-VITAMIN [Concomitant]
     Indication: VITAMIN SUPPLEMENTATION
     Dosage: 1 PILL DAILY
     Dates: start: 20060101
  5. YAZ [Suspect]
     Indication: CONTRACEPTION
     Dosage: UNK
     Route: 048
     Dates: start: 20080430, end: 20100301

REACTIONS (5)
  - GALLBLADDER DISORDER [None]
  - URINARY RETENTION [None]
  - PAIN [None]
  - BILIARY DYSKINESIA [None]
  - ABDOMINAL PAIN [None]
